FAERS Safety Report 7801497-7 (Version None)
Quarter: 2011Q4

REPORT INFORMATION
  Report Type: 
  Country: None (occurrence: None)
  Receive Date: 20111006
  Receipt Date: 20111006
  Transmission Date: 20120403
  Serious: Yes (Hospitalization)
  Sender: FDA-Public Use
  Company Number: None

PATIENT
  Age: 72 Year
  Sex: Male
  Weight: 52.3 kg

DRUGS (2)
  1. WARFARIN SODIUM [Suspect]
     Indication: ATRIAL FIBRILLATION
     Dates: start: 19930101, end: 20110623
  2. CELECOXIB [Suspect]
     Indication: RHEUMATOID ARTHRITIS
     Dosage: 200 MG EVERY DAY PO
     Route: 048
     Dates: start: 20050406, end: 20110630

REACTIONS (3)
  - STRESS ULCER [None]
  - DUODENAL ULCER HAEMORRHAGE [None]
  - GASTRIC HAEMORRHAGE [None]
